FAERS Safety Report 16751861 (Version 1)
Quarter: 2019Q3

REPORT INFORMATION
  Report Type: Spontaneous
  Country: US (occurrence: US)
  Receive Date: 20190828
  Receipt Date: 20190828
  Transmission Date: 20191005
  Serious: No
  Sender: FDA-Public Use
  Company Number: US-ENDO PHARMACEUTICALS INC-2019-101674

PATIENT
  Sex: Female

DRUGS (2)
  1. ATORVASTATIN APOTEX [Suspect]
     Active Substance: ATORVASTATIN
     Indication: BLOOD CHOLESTEROL INCREASED
     Dosage: UNK, UNKNOWN
     Route: 065
  2. PREDNISONE. [Suspect]
     Active Substance: PREDNISONE
     Indication: HYPERSENSITIVITY
     Dosage: UNK, UNKNOWN
     Route: 065

REACTIONS (5)
  - Lip swelling [Unknown]
  - Salivary hypersecretion [Unknown]
  - Chromaturia [Unknown]
  - Blood cholesterol increased [Unknown]
  - Pruritus [Unknown]
